FAERS Safety Report 6705343-4 (Version None)
Quarter: 2010Q2

REPORT INFORMATION
  Report Type: 
  Country: None (occurrence: None)
  Receive Date: 20100501
  Receipt Date: 20100420
  Transmission Date: 20101027
  Serious: Yes (Hospitalization, Other)
  Sender: FDA-Public Use
  Company Number: US-ELI_LILLY_AND_COMPANY-US201004006330

PATIENT
  Sex: Female

DRUGS (23)
  1. FORTEO [Suspect]
     Dosage: 20 UG, DAILY (1/D)
     Dates: start: 20090801
  2. METFORMIN [Concomitant]
  3. PREMARIN [Concomitant]
  4. LISINOPRIL [Concomitant]
  5. GLUCOSAMINE [Concomitant]
  6. FISH OIL [Concomitant]
  7. BENZONATATE [Concomitant]
  8. VYTORIN [Concomitant]
  9. ETODOLAC [Concomitant]
  10. OXYCODONE [Concomitant]
  11. NITROSTAT [Concomitant]
  12. THEOPHYLLINE [Concomitant]
  13. MUCINEX [Concomitant]
  14. LYRICA [Concomitant]
  15. CALCIUM [Concomitant]
  16. SPIRIVA [Concomitant]
  17. NOVOLIN N [Concomitant]
  18. NOVOLOG [Concomitant]
  19. ONE A DAY ESSENTIAL [Concomitant]
  20. AMITRIPTYLINE [Concomitant]
  21. MORPHINE [Concomitant]
  22. CALCIUM CITRATE [Concomitant]
     Dosage: 2 D/F, DAILY (1/D)
  23. CALCIUM CITRATE [Concomitant]
     Dosage: 1 D/F, DAILY (1/D)

REACTIONS (7)
  - BLOOD CALCIUM INCREASED [None]
  - CHONDROPATHY [None]
  - DRUG INEFFECTIVE [None]
  - FEELING ABNORMAL [None]
  - FRACTURE [None]
  - HIP SURGERY [None]
  - MUSCLE INJURY [None]
